FAERS Safety Report 8242482-3 (Version None)
Quarter: 2012Q1

REPORT INFORMATION
  Report Type: 
  Country: None (occurrence: None)
  Receive Date: 20120329
  Receipt Date: 20120319
  Transmission Date: 20120608
  Serious: Yes (Other)
  Sender: FDA-Public Use
  Company Number: TN-ACCORD-012797

PATIENT
  Age: 29 Year
  Sex: Male

DRUGS (3)
  1. VORICONAZOLE [Suspect]
     Indication: DERMATOPHYTOSIS
  2. TACROLIMUS [Suspect]
     Indication: RENAL TRANSPLANT
  3. CORTICOSTEROID NOS [Suspect]
     Indication: RENAL TRANSPLANT

REACTIONS (2)
  - DRUG INTERACTION [None]
  - DERMATOPHYTOSIS [None]
